FAERS Safety Report 5418736-2 (Version None)
Quarter: 2007Q3

REPORT INFORMATION
  Report Type: 
  Country: None (occurrence: None)
  Receive Date: 20070817
  Receipt Date: 20070807
  Transmission Date: 20080115
  Serious: Yes (Other)
  Sender: FDA-Public Use
  Company Number: JP-PFIZER INC-2007055457

PATIENT
  Age: 35 Year
  Sex: Female

DRUGS (2)
  1. ZITHROMAC [Suspect]
     Dosage: DAILY DOSE:500MG
     Route: 048
     Dates: start: 20070625, end: 20070628
  2. ALLELOCK [Concomitant]
     Route: 048

REACTIONS (2)
  - DYSGEUSIA [None]
  - PAROSMIA [None]
